FAERS Safety Report 8784985 (Version 2)
Quarter: 2012Q4

REPORT INFORMATION
  Report Type: Spontaneous
  Country: US (occurrence: None)
  Receive Date: 20120829
  Receipt Date: 20120910
  Transmission Date: 20130627
  Serious: Yes (Other)
  Sender: FDA-Public Use
  Company Number: 2012SA058924

PATIENT
  Age: 80 Year
  Sex: Female
  Weight: 73 kg

DRUGS (3)
  1. CAPSAICIN [Suspect]
     Indication: ARTHRITIS
     Route: 061
     Dates: start: 20120816, end: 20120816
  2. PRAVASTATIN [Concomitant]
  3. ASPIRIN [Concomitant]

REACTIONS (6)
  - Accidental exposure to product [None]
  - Eye irritation [None]
  - Blindness transient [None]
  - Expired drug administered [None]
  - Incorrect route of drug administration [None]
  - Burning sensation [None]
